FAERS Safety Report 18679994 (Version 7)
Quarter: 2021Q3

REPORT INFORMATION
  Report Type: Spontaneous
  Country: FR (occurrence: FR)
  Receive Date: 20201229
  Receipt Date: 20210830
  Transmission Date: 20211014
  Serious: Yes (Hospitalization, Other)
  Sender: FDA-Public Use
  Company Number: FR-ASCEND THERAPEUTICS US, LLC-2103597

PATIENT
  Age: 52 Year
  Sex: Female
  Weight: 61 kg

DRUGS (62)
  1. ESTROGEL [Suspect]
     Active Substance: ESTRADIOL
  2. CYPROTERONE (CYPROTERONE), UNKNOWN?INDICATION FOR USE: HYPERANDROGENEM [Suspect]
     Active Substance: CYPROTERONE
     Route: 065
     Dates: start: 20090615
  3. CYPROTERONE (CYPROTERONE), UNKNOWN [Suspect]
     Active Substance: CYPROTERONE
     Route: 065
     Dates: start: 20110404
  4. CYCLEANE?DAILY DOSE: 1 BOX OF 3 BLISTER PACKS. TO REPEAT 4 TIMES [Suspect]
     Active Substance: DESOGESTREL\ETHINYL ESTRADIOL
     Route: 065
     Dates: start: 20020227
  5. CYCLEANE?DAILY DOSE: CYCLEANE 30, 1 BOX OF 3 BLISTER PACKS. TO REPEAT [Suspect]
     Active Substance: DESOGESTREL\ETHINYL ESTRADIOL
     Route: 065
     Dates: start: 20010822
  6. CYCLEANE?DAILY DOSE: 1 BOX OF 3 BLISTER PACKS. TO REPEAT 3 MONTHS [Suspect]
     Active Substance: DESOGESTREL\ETHINYL ESTRADIOL
     Route: 065
     Dates: start: 20000711
  7. MIRENA [Suspect]
     Active Substance: LEVONORGESTREL
     Route: 065
     Dates: start: 20040707
  8. ANDROCUR [Suspect]
     Active Substance: CYPROTERONE ACETATE
     Route: 065
  9. ANDROCUR [Suspect]
     Active Substance: CYPROTERONE ACETATE
     Route: 065
     Dates: start: 20100816
  10. OROMONE?DAILY DOSE: 1 DF, QD FOR 20 DAYS (1 BOX OF 12. TO RESUME 6 TIM [Suspect]
     Active Substance: ESTRADIOL
     Route: 065
     Dates: start: 20070829
  11. ZOMIG?DAILY DOSE: 1 DF (HOUR LATER IF NEEDED) [Concomitant]
     Route: 065
     Dates: start: 20060808
  12. ZOMIG?DAILY DOSE: 1 DF FOR MIGRAINE TO REPEAT ONE HOUR LATER IF NEEDED [Concomitant]
     Route: 065
     Dates: start: 20040107
  13. ANDROCUR (CYPROTERONE ACETATE), UNKNOWN?INDICATION FOR USE: HYPERANDRO [Suspect]
     Active Substance: CYPROTERONE ACETATE
     Route: 065
     Dates: start: 20120828, end: 20130826
  14. ANDROCUR (CYPROTERONE ACETATE), UNKNOWN [Suspect]
     Active Substance: CYPROTERONE ACETATE
     Route: 065
     Dates: start: 199806, end: 1999
  15. CYCLEANE?DAILY DOSE: 1 BOX OF 3 BLISTER PACKS. [Suspect]
     Active Substance: DESOGESTREL\ETHINYL ESTRADIOL
     Route: 065
     Dates: start: 20021030
  16. ANDROCUR [Suspect]
     Active Substance: CYPROTERONE ACETATE
     Route: 065
     Dates: start: 20060628
  17. ZOMIG?DAILY DOSE: 1 DF (TO REPEAT 1 HR LATER IF NEEDED) [Concomitant]
     Route: 065
     Dates: start: 20051006
  18. OROMONE(ESTRADIOL)(TABLET) [Suspect]
     Active Substance: ESTRADIOL
     Route: 065
     Dates: start: 200507, end: 201108
  19. ESTRADIOL. [Suspect]
     Active Substance: ESTRADIOL
     Route: 065
  20. BI PROFENID (KETOPROFEN), UNK [Concomitant]
     Route: 065
  21. ANDROCUR [Suspect]
     Active Substance: CYPROTERONE ACETATE
     Route: 065
     Dates: start: 20050713
  22. ANDROCUR [Suspect]
     Active Substance: CYPROTERONE ACETATE
     Route: 065
     Dates: start: 20090901
  23. ZOMIG?DAILY DOSE: 1 DF (FOR MIGRAINE TO REPEAT ONE HOUR LATER IF NEEDE [Concomitant]
     Route: 065
     Dates: start: 20030611
  24. ZOMIG [Concomitant]
     Active Substance: ZOLMITRIPTAN
     Route: 065
     Dates: start: 19990318
  25. CYPROTERONE (CYPROTERONE), UNKNOWN [Suspect]
     Active Substance: CYPROTERONE
     Route: 065
     Dates: start: 20110606
  26. OROMONE (ESTRADIOL), UNKNOWN?INDICATION FOR USE: HYPERANDROGENEMIA [Suspect]
     Active Substance: ESTRADIOL
     Route: 065
     Dates: start: 20050713
  27. MOTILIUM (DOMPERIDONE), UNKNOWN [Concomitant]
     Route: 065
  28. ANDROCUR [Suspect]
     Active Substance: CYPROTERONE ACETATE
     Route: 065
     Dates: start: 20070829
  29. ANDROCUR?DAILY DOSE: 1 DF, QD FOR 7 FIRST DAYS OF CYCLEANE (1 IN 1 D) [Suspect]
     Active Substance: CYPROTERONE ACETATE
     Route: 065
     Dates: start: 20040107
  30. OROMONE [Suspect]
     Active Substance: ESTRADIOL
     Route: 065
     Dates: start: 20060628
  31. OROMONE [Suspect]
     Active Substance: ESTRADIOL
     Route: 065
     Dates: start: 20090901
  32. PROVAMES (ESTRADIOL) [Concomitant]
     Active Substance: ESTRADIOL
     Route: 065
     Dates: start: 19990505
  33. DUPHASTON [Concomitant]
     Active Substance: DYDROGESTERONE
     Route: 065
     Dates: start: 19990505
  34. POLYGYNAX (NYSTATIN, NEOMYCIN SULFATE, POLYMYXIN B SULFATE)?DAILY DOSE [Concomitant]
     Route: 065
  35. TRINORDIOL(ETHINYLESTRADIOL, LEVONORGESTREL) [Suspect]
     Active Substance: ETHINYL ESTRADIOL\LEVONORGESTREL
     Route: 065
  36. ANDROCUR (CYPROTERONE ACETATE) [Suspect]
     Active Substance: CYPROTERONE ACETATE
     Route: 065
     Dates: start: 20021030
  37. OROMONE [Suspect]
     Active Substance: ESTRADIOL
     Route: 065
     Dates: start: 20060808
  38. ZOMIG (ZOLMITRIPTAN)?DAILY DOSE: 1 DF FOR MIGRAINE TO REPEAT ONE HOUR [Concomitant]
     Route: 065
     Dates: start: 20010822
  39. ZOMIG?DAILY DOSE: 1 DF (TO REPEAT 1 HOUR LATER IF NEEDED) [Concomitant]
     Route: 065
     Dates: start: 20080919
  40. ESTROGEL [Suspect]
     Active Substance: ESTRADIOL
     Indication: PRODUCT USED FOR UNKNOWN INDICATION
     Route: 065
  41. CYPROTERONE (CYPROTERONE), UNKNOWN [Suspect]
     Active Substance: CYPROTERONE
     Route: 065
  42. ANDROCUR (CYPROTERONE ACETATE), UNKNOWN [Suspect]
     Active Substance: CYPROTERONE ACETATE
     Route: 065
     Dates: end: 201506
  43. ANDROCUR (CYPROTERONE ACETATE), UNKNOWN [Suspect]
     Active Substance: CYPROTERONE ACETATE
     Route: 065
     Dates: start: 2000, end: 2004
  44. ESTRADIOL, NOS [Suspect]
     Active Substance: ESTRADIOL
     Route: 065
     Dates: start: 19990505
  45. ANDROCUR?DAILY DOSE: 1 DF, QD FOR 7 FIRST DAYS OF CYCLEANE; 1 BOX TO R [Suspect]
     Active Substance: CYPROTERONE ACETATE
     Route: 065
     Dates: start: 20030611
  46. ZOMIG [Concomitant]
     Active Substance: ZOLMITRIPTAN
     Route: 065
     Dates: start: 19990213
  47. CYCLEANE (ETHINYLESTRADIOL, DESOGESTREL), UNKNOWN?INDICATION FOR USE: [Suspect]
     Active Substance: DESOGESTREL\ETHINYL ESTRADIOL
     Route: 065
     Dates: start: 2000, end: 2004
  48. MIRENA [Suspect]
     Active Substance: LEVONORGESTREL
     Route: 015
     Dates: start: 20040901, end: 20050913
  49. TRINORDIOL (ETHINYLESTRADIOL, LEVONORGESTREL), UNKNOWN?INDICATION FOR [Suspect]
     Active Substance: ETHINYL ESTRADIOL\LEVONORGESTREL
     Route: 065
     Dates: start: 19980617, end: 19990213
  50. ANDROCUR (CYPROTERONE ACETATE), UNKNOWN [Suspect]
     Active Substance: CYPROTERONE ACETATE
     Route: 065
     Dates: start: 200507, end: 201108
  51. CYCLEANE?DAILY DOSE: 1 BOX OF 3 BLISTER PACKS. TO REPEAT 6 TIMES [Suspect]
     Active Substance: DESOGESTREL\ETHINYL ESTRADIOL
     Route: 065
     Dates: start: 20040107
  52. CYCLEANE?DAILY DOSE: 1 BOX OF 3 BLISTER PACKS. TO REPEAT 6 TIMES [Suspect]
     Active Substance: DESOGESTREL\ETHINYL ESTRADIOL
     Route: 065
     Dates: start: 20030611
  53. ANDROCUR (CYPROTERONE ACETATE)?DAILY DOSE: 1 DF, QD (FOR 6 FIRST DAYS [Suspect]
     Active Substance: CYPROTERONE ACETATE
     Route: 065
     Dates: start: 19990213
  54. ANDROCUR [Suspect]
     Active Substance: CYPROTERONE ACETATE
     Route: 065
     Dates: start: 20060808
  55. ANDROCUR?DAILY DOSE: 1 DF, QD FOR 7 FIRST DAYS OF CYCLEANE (1 DOSAGE F [Suspect]
     Active Substance: CYPROTERONE ACETATE
     Route: 065
     Dates: start: 20020227
  56. ZOMIG?DAILY DOSE: 1 DF (TO REPEAT 1 HOUR LATER IF NEEDED) [Concomitant]
     Route: 065
     Dates: start: 20070829
  57. ZOMIG?DAILY DOSE: 1 DF (TO REPEAT 1 HOUR LATER IF NEEDED) [Concomitant]
     Route: 065
     Dates: start: 20090901
  58. ZOMIG?DAILY DOSE: 1 DF (TO REPEAT ONE HOUR LATER IF NEEDED AND 4 TIMES [Concomitant]
     Route: 065
     Dates: start: 20020227
  59. ANDROCUR [Suspect]
     Active Substance: CYPROTERONE ACETATE
     Route: 065
     Dates: start: 19990723
  60. OROMONE?DAILY DOSE: 1 DF, QD FOR 20 DAYS (SUSPENDED FOR 1 WEEK AND THE [Suspect]
     Active Substance: ESTRADIOL
     Route: 065
     Dates: start: 20100816, end: 201108
  61. ZOMIG?DAILY DOSE: 1 DF FOR MIGRAINE TO REPEAT ONE HOUR LATER IF NEEDED [Concomitant]
     Route: 065
     Dates: start: 20021030
  62. MOTILIUM(DOMPERIDONE) [Concomitant]
     Route: 065

REACTIONS (31)
  - Pain of skin [Unknown]
  - Pain [Unknown]
  - Skin lesion [Unknown]
  - Fatigue [Unknown]
  - Feeling abnormal [Unknown]
  - Dysarthria [Unknown]
  - Aphasia [Unknown]
  - Arthralgia [Unknown]
  - Haemorrhage [Unknown]
  - Cognitive disorder [Unknown]
  - Squamous cell carcinoma [Unknown]
  - Post procedural oedema [Unknown]
  - Pain in extremity [Unknown]
  - Facial paralysis [Unknown]
  - Sleep disorder [Unknown]
  - Hypothermia [Unknown]
  - Nausea [Unknown]
  - Skin depigmentation [Unknown]
  - Tumour haemorrhage [Unknown]
  - Language disorder [Unknown]
  - Scar [Unknown]
  - Migraine [Unknown]
  - Meningioma [Unknown]
  - Musculoskeletal stiffness [Unknown]
  - Psychomotor retardation [Unknown]
  - Epilepsy [Unknown]
  - Headache [Unknown]
  - Seizure [Unknown]
  - Tension headache [Unknown]
  - Haematoma [Unknown]
  - Muscle tightness [Unknown]

NARRATIVE: CASE EVENT DATE: 2014
